FAERS Safety Report 4738088-0 (Version None)
Quarter: 2005Q3

REPORT INFORMATION
  Report Type: 
  Country: None (occurrence: None)
  Receive Date: 20050805
  Receipt Date: 20050805
  Transmission Date: 20060218
  Serious: Yes (Other)
  Sender: FDA-Public Use
  Company Number: None

PATIENT
  Age: 83 Year
  Sex: Male
  Weight: 93 kg

DRUGS (1)
  1. FERRLICIT 260MG/250ML NORMAL SALINE IV XL [Suspect]
     Dosage: 250MG/250ML IV INFUSION
     Route: 042
     Dates: start: 20050321

REACTIONS (6)
  - ABDOMINAL DISCOMFORT [None]
  - DEFAECATION URGENCY [None]
  - DRY SKIN [None]
  - HYPOTENSION [None]
  - INFUSION RELATED REACTION [None]
  - SKIN WARM [None]
